FAERS Safety Report 20574133 (Version 1)
Quarter: 2022Q1

REPORT INFORMATION
  Report Type: Spontaneous
  Country: US (occurrence: US)
  Receive Date: 20220309
  Receipt Date: 20220309
  Transmission Date: 20220423
  Serious: Yes (Hospitalization, Disabling, Other)
  Sender: FDA-Public Use
  Company Number: US-PFIZER INC-202200350012

PATIENT
  Age: 18 Month
  Sex: Male

DRUGS (2)
  1. PRISTIQ EXTENDED-RELEASE [Suspect]
     Active Substance: DESVENLAFAXINE SUCCINATE
     Dosage: UNK
     Route: 064
  2. PRISTIQ EXTENDED-RELEASE [Suspect]
     Active Substance: DESVENLAFAXINE SUCCINATE
     Dosage: UNK
     Route: 063

REACTIONS (10)
  - Bradycardia neonatal [Unknown]
  - Tremor [Unknown]
  - Deafness bilateral [Unknown]
  - Vestibular disorder [Unknown]
  - Exposure during pregnancy [Unknown]
  - Maternal exposure during breast feeding [Unknown]
  - Temperature regulation disorder [Unknown]
  - Small for dates baby [Unknown]
  - Jaundice neonatal [Unknown]
  - Speech disorder [Unknown]
